FAERS Safety Report 4388401-1 (Version None)
Quarter: 2004Q2

REPORT INFORMATION
  Report Type: 
  Country: None (occurrence: None)
  Receive Date: 20040625
  Receipt Date: 20040618
  Transmission Date: 20050107
  Serious: Yes (Hospitalization, Disabling)
  Sender: FDA-Public Use
  Company Number: HQ2541303JUN2002

PATIENT
  Age: 46 Year
  Sex: Female

DRUGS (4)
  1. DIMETAPP [Suspect]
  2. ALKA-SELTZER PLUS (ACETYLSALICYLIC ACID/CHLORPHENAMINE MALEATE/PHENYLP [Suspect]
  3. CONTAC [Suspect]
  4. CORICIDIN D SRT [Suspect]

REACTIONS (5)
  - ARTERIOVENOUS MALFORMATION [None]
  - BLINDNESS [None]
  - BRAIN HERNIATION [None]
  - HAEMORRHAGIC STROKE [None]
  - INTRACRANIAL ANEURYSM [None]
